FAERS Safety Report 19815154 (Version 1)
Quarter: 2021Q3

REPORT INFORMATION
  Report Type: Spontaneous
  Country: US (occurrence: US)
  Receive Date: 20210909
  Receipt Date: 20210909
  Transmission Date: 20211014
  Serious: Yes (Hospitalization)
  Sender: FDA-Public Use
  Company Number: US-ASTRAZENECA-2021A719576

PATIENT
  Age: 72 Year
  Sex: Female
  Weight: 48 kg

DRUGS (23)
  1. BINIMETINIB [Suspect]
     Active Substance: BINIMETINIB
     Indication: MALIGNANT MELANOMA
     Dosage: 30 MG, THEN 30 MG IN THE EVENING
     Route: 048
     Dates: start: 20210602
  2. MOMETASONE [Concomitant]
     Active Substance: MOMETASONE
  3. MIDAZOLAM. [Suspect]
     Active Substance: MIDAZOLAM
     Indication: NEOPLASM
     Dosage: 2 MG, TAKEN ONLY ON DAY 7 AND DAY 1
     Route: 048
     Dates: start: 20210507, end: 20210507
  4. HYDROCHLOROTHIAZIDE. [Concomitant]
     Active Substance: HYDROCHLOROTHIAZIDE
  5. ZOVIRAX [Concomitant]
     Active Substance: ACYCLOVIR
     Dates: start: 2000
  6. DEXTROMETHORPHAN [Suspect]
     Active Substance: DEXTROMETHORPHAN
     Indication: NEOPLASM
     Route: 048
     Dates: start: 20210430
  7. CAFFEINE. [Suspect]
     Active Substance: CAFFEINE
     Indication: NEOPLASM
     Dosage: 50 MG, 7 DAY, DAY 1 AND DAY 14
     Route: 065
     Dates: start: 20210507, end: 20210507
  8. ALENDRONATE [Concomitant]
     Active Substance: ALENDRONATE SODIUM
     Route: 048
  9. LOPERAMIDE [Concomitant]
     Active Substance: LOPERAMIDE
  10. LOSARTAN. [Suspect]
     Active Substance: LOSARTAN
     Indication: NEOPLASM
     Dosage: 25 MG, TAKEN ONLY AT DAY?7 AND DAY 1
     Route: 048
     Dates: start: 20210507, end: 20210507
  11. DEXTROMETHORPHAN [Suspect]
     Active Substance: DEXTROMETHORPHAN
     Indication: NEOPLASM
     Dosage: 15.0MG UNKNOWN
     Route: 048
     Dates: start: 20210507, end: 20210507
  12. ENCORAFENIB [Suspect]
     Active Substance: ENCORAFENIB
     Indication: MALIGNANT MELANOMA
     Dosage: 300.0MG UNKNOWN
     Route: 048
     Dates: start: 20210602
  13. NITROFURANTOIN. [Concomitant]
     Active Substance: NITROFURANTOIN
  14. OMEPRAZOLE. [Suspect]
     Active Substance: OMEPRAZOLE
     Indication: NEOPLASM
     Dosage: UNKNOWN DOSE
     Route: 048
     Dates: start: 20210430
  15. CAFFEINE. [Suspect]
     Active Substance: CAFFEINE
     Indication: NEOPLASM
     Route: 065
     Dates: start: 20210430
  16. NYSTATIN. [Concomitant]
     Active Substance: NYSTATIN
  17. OMEPRAZOLE. [Suspect]
     Active Substance: OMEPRAZOLE
     Indication: NEOPLASM
     Dosage: 20 MG, DAY 7, DAY 1 AND DAY 14
     Route: 048
     Dates: start: 20210507, end: 20210507
  18. ENCORAFENIB [Suspect]
     Active Substance: ENCORAFENIB
     Indication: MALIGNANT MELANOMA
     Route: 048
     Dates: start: 20210507, end: 20210517
  19. BINIMETINIB [Suspect]
     Active Substance: BINIMETINIB
     Indication: MALIGNANT MELANOMA
     Route: 048
     Dates: start: 20210507, end: 20210516
  20. RAMIPRIL. [Concomitant]
     Active Substance: RAMIPRIL
  21. HYDROMORPHONE HCL [Concomitant]
     Active Substance: HYDROMORPHONE HYDROCHLORIDE
  22. TRAVOPROST. [Concomitant]
     Active Substance: TRAVOPROST
  23. PANTOPRAZOLE [Concomitant]
     Active Substance: PANTOPRAZOLE
     Indication: GASTROOESOPHAGEAL REFLUX DISEASE
     Route: 048
     Dates: start: 2019, end: 20210419

REACTIONS (5)
  - Fatigue [Unknown]
  - Hypoaesthesia [Unknown]
  - Chills [Recovered/Resolved]
  - Product use in unapproved indication [Unknown]
  - Pyrexia [Recovered/Resolved]

NARRATIVE: CASE EVENT DATE: 20210517
